FAERS Safety Report 13745891 (Version 1)
Quarter: 2017Q3

REPORT INFORMATION
  Report Type: Spontaneous
  Country: US (occurrence: US)
  Receive Date: 20170712
  Receipt Date: 20170712
  Transmission Date: 20171127
  Serious: No
  Sender: FDA-Public Use
  Company Number: US-GLAXOSMITHKLINE-US2017GSK107008

PATIENT
  Sex: Female
  Weight: 52.15 kg

DRUGS (1)
  1. WELLBUTRIN XL [Suspect]
     Active Substance: BUPROPION HYDROCHLORIDE
     Indication: PRODUCT USED FOR UNKNOWN INDICATION
     Dosage: 300 MG, QD
     Route: 048
     Dates: start: 2017

REACTIONS (5)
  - Depression [Unknown]
  - Insomnia [Unknown]
  - Weight increased [Unknown]
  - Anxiety [Unknown]
  - Product quality issue [Unknown]
